FAERS Safety Report 7905185-8 (Version None)
Quarter: 2011Q4

REPORT INFORMATION
  Report Type: 
  Country: None (occurrence: None)
  Receive Date: 20111109
  Receipt Date: 20111101
  Transmission Date: 20120403
  Serious: Yes (Other)
  Sender: FDA-Public Use
  Company Number: TR-BAYER-2011-106112

PATIENT

DRUGS (1)
  1. MOXIFLOXACIN [Suspect]
     Indication: UPPER RESPIRATORY TRACT INFECTION
     Dosage: UNK
     Dates: start: 20060101, end: 20060101

REACTIONS (5)
  - PHOTOPHOBIA [None]
  - OCULAR HYPERAEMIA [None]
  - IRIS TRANSILLUMINATION DEFECT [None]
  - MYDRIASIS [None]
  - INTRAOCULAR PRESSURE INCREASED [None]
